FAERS Safety Report 10958702 (Version 1)
Quarter: 2015Q1

REPORT INFORMATION
  Report Type: Spontaneous
  Country: US (occurrence: None)
  Receive Date: 20150226
  Receipt Date: 20150226
  Transmission Date: 20150721
  Serious: Yes (Hospitalization)
  Sender: FDA-Public Use
  Company Number: TPA2009A01152

PATIENT
  Age: 67 Year
  Sex: Female
  Weight: 48.08 kg

DRUGS (7)
  1. PREVACID [Suspect]
     Active Substance: LANSOPRAZOLE
     Indication: GASTROOESOPHAGEAL REFLUX DISEASE
     Route: 048
     Dates: start: 2006, end: 2009
  2. ASPIRIN (ACETYLSALICYLIC ACID) [Concomitant]
     Active Substance: ASPIRIN
  3. CALTRATE [Concomitant]
     Active Substance: CALCIUM CARBONATE
  4. VYTORIN (SIMVASTATIN, EZETIMIBE) [Concomitant]
  5. CENTRUM (VITAMINS NOS, MINERALS NOS) [Concomitant]
  6. NITROGLYCERIN (GLYCERYL TRINITRATE) [Concomitant]
     Active Substance: NITROGLYCERIN
  7. TOPROL (METOPROLOL SUCCINATE) [Concomitant]

REACTIONS (1)
  - Myocardial infarction [None]

NARRATIVE: CASE EVENT DATE: 2006
